FAERS Safety Report 22055064 (Version 1)
Quarter: 2023Q1

REPORT INFORMATION
  Report Type: Spontaneous
  Country: CN (occurrence: CN)
  Receive Date: 20230302
  Receipt Date: 20230302
  Transmission Date: 20230418
  Serious: Yes (Other)
  Sender: FDA-Public Use
  Company Number: CN-BAYER-2023A025780

PATIENT
  Age: 24 Year
  Sex: Male

DRUGS (4)
  1. XARELTO [Interacting]
     Active Substance: RIVAROXABAN
     Indication: Venous thrombosis limb
     Dosage: 10 MG, QD
     Route: 048
     Dates: start: 20221229, end: 20230122
  2. ASPIRIN [Interacting]
     Active Substance: ASPIRIN
     Indication: Antiplatelet therapy
     Dosage: 100 MG, QD
     Route: 048
     Dates: start: 20221227, end: 20230122
  3. MANNITOL [Concomitant]
     Active Substance: MANNITOL
     Dosage: 125 ML, TID
     Route: 041
     Dates: start: 20221227, end: 20230102
  4. ALPRAZOLAM [Concomitant]
     Active Substance: ALPRAZOLAM
     Dosage: 0.4 MG, QD
     Route: 048
     Dates: start: 20221230, end: 20230118

REACTIONS (5)
  - Upper gastrointestinal haemorrhage [Recovered/Resolved]
  - Haematochezia [Recovered/Resolved]
  - Labelled drug-drug interaction medication error [Unknown]
  - Diarrhoea [Recovered/Resolved]
  - Mucous stools [Recovered/Resolved]

NARRATIVE: CASE EVENT DATE: 20230122
